FAERS Safety Report 9196437 (Version 2)
Quarter: 2013Q2

REPORT INFORMATION
  Report Type: Spontaneous
  Country: US (occurrence: US)
  Receive Date: 20130328
  Receipt Date: 20130409
  Transmission Date: 20140414
  Serious: No
  Sender: FDA-Public Use
  Company Number: US-PFIZER INC-2013100526

PATIENT
  Age: 74 Year
  Sex: Male

DRUGS (2)
  1. OXYCODONE HYDROCHLORIDE [Suspect]
     Indication: BREAKTHROUGH PAIN
     Dosage: 5 MG OR 10 MG, EVERY 4 HRS (AS NEEDED)
     Route: 048
  2. OXYCONTIN [Suspect]
     Indication: BREAKTHROUGH PAIN
     Dosage: 20 MG, 2X/DAY
     Route: 048

REACTIONS (3)
  - Somnolence [Unknown]
  - Constipation [Unknown]
  - Nausea [Unknown]
